FAERS Safety Report 5348883-5 (Version None)
Quarter: 2007Q2

REPORT INFORMATION
  Report Type: 
  Country: None (occurrence: None)
  Receive Date: 20070607
  Receipt Date: 20070530
  Transmission Date: 20071010
  Serious: Yes (Other)
  Sender: FDA-Public Use
  Company Number: PHBS2007JP08243

PATIENT
  Age: 72 Year
  Sex: Male

DRUGS (6)
  1. LOPRESSOR [Suspect]
     Dosage: 40 MG/DAY
     Route: 048
  2. SILECE [Concomitant]
     Route: 048
  3. VEGETAMIN A [Concomitant]
  4. VEGETAMIN B [Concomitant]
  5. HIRNAMIN [Concomitant]
  6. SEROQUEL [Concomitant]

REACTIONS (2)
  - BRADYCARDIA [None]
  - SINUS ARREST [None]
